FAERS Safety Report 6003719-4 (Version None)
Quarter: 2008Q4

REPORT INFORMATION
  Report Type: 
  Country: None (occurrence: None)
  Receive Date: 20081216
  Receipt Date: 20080813
  Transmission Date: 20090506
  Serious: Yes (Other)
  Sender: FDA-Public Use
  Company Number: US-AMGEN-QUU299501

PATIENT
  Sex: Male
  Weight: 90.8 kg

DRUGS (13)
  1. ARANESP [Suspect]
     Indication: MYELODYSPLASTIC SYNDROME
     Route: 058
     Dates: start: 20080620, end: 20080729
  2. ARANESP [Suspect]
  3. ANDROGEL [Concomitant]
  4. ALLOPURINOL [Concomitant]
  5. ATENOLOL [Concomitant]
  6. BECLOMETHASONE DIPROPIONATE [Concomitant]
  7. HYDROCHLOROTHIAZIDE [Concomitant]
  8. KEFLEX [Concomitant]
  9. LEVAQUIN [Concomitant]
  10. POTASSIUM CHLORIDE [Concomitant]
  11. PREDNISONE TAB [Concomitant]
  12. ZEGERID [Concomitant]
  13. MOMETASONE FUROATE [Concomitant]

REACTIONS (1)
  - DRUG INEFFECTIVE [None]
